FAERS Safety Report 6457093-X (Version None)
Quarter: 2009Q4

REPORT INFORMATION
  Report Type: 
  Country: None (occurrence: None)
  Receive Date: 20091125
  Receipt Date: 20091117
  Transmission Date: 20100525
  Serious: Yes (Life-Threatening, Hospitalization, Other)
  Sender: FDA-Public Use
  Company Number: B0586281A

PATIENT
  Sex: Female
  Weight: 70 kg

DRUGS (14)
  1. LAMICTAL [Suspect]
     Indication: EPILEPSY
     Route: 048
     Dates: start: 20090101, end: 20090725
  2. KEPPRA [Concomitant]
     Indication: EPILEPSY
     Route: 065
     Dates: start: 20090725
  3. BETAMETHASONE SODIUM PHOSPHATE [Concomitant]
     Dosage: .5MG FOUR TIMES PER DAY
     Route: 002
  4. DOXYCYCLINE [Concomitant]
     Dosage: 100MG FOUR TIMES PER DAY
     Route: 002
  5. COCAINE MOUTHWASH [Concomitant]
     Dosage: 5ML FOUR TIMES PER DAY
     Route: 002
  6. DERMOL 500 LOTION [Concomitant]
     Route: 061
  7. LOTION [Concomitant]
     Route: 061
  8. MULTI-VITAMINS [Concomitant]
     Dosage: 1CAP PER DAY
     Route: 048
  9. BUILD-UP [Concomitant]
     Route: 048
  10. WHITE PARAFFIN + LIQUID PARAFFIN [Concomitant]
     Route: 061
  11. TRIMOVATE [Concomitant]
     Route: 061
  12. PREDNISOLONE TAB [Concomitant]
     Dosage: 30MG IN THE MORNING
     Route: 048
  13. SCANDISHAKES [Concomitant]
     Dosage: 1SAC PER DAY
     Route: 048
  14. FORTIJUICE [Concomitant]
     Route: 048

REACTIONS (23)
  - ANAL EROSION [None]
  - ANAPHYLACTIC REACTION [None]
  - BLOOD BLISTER [None]
  - BLOOD POTASSIUM DECREASED [None]
  - C-REACTIVE PROTEIN INCREASED [None]
  - DYSPHAGIA [None]
  - GENITAL DISCOMFORT [None]
  - GENITAL EROSION [None]
  - GENITAL RASH [None]
  - HYPOPHAGIA [None]
  - LIP SWELLING [None]
  - LIP ULCERATION [None]
  - MOUTH ULCERATION [None]
  - ORAL MUCOSAL EXFOLIATION [None]
  - OROPHARYNGEAL PAIN [None]
  - PARTIAL SEIZURES [None]
  - RASH ERYTHEMATOUS [None]
  - RASH PAPULAR [None]
  - RASH PRURITIC [None]
  - STEVENS-JOHNSON SYNDROME [None]
  - SWELLING FACE [None]
  - SWOLLEN TONGUE [None]
  - TONGUE COATED [None]
